FAERS Safety Report 8553632-3 (Version None)
Quarter: 2012Q2

REPORT INFORMATION
  Report Type: 
  Country: None (occurrence: None)
  Receive Date: 20120417
  Receipt Date: 20111118
  Transmission Date: 20120825
  Serious: Yes (Other)
  Sender: FDA-Public Use
  Company Number: -756

PATIENT
  Age: 62 Year
  Sex: Female
  Weight: 79 kg

DRUGS (1)
  1. ALEVE [Suspect]
     Dosage: 2DF / ONCE / ORAL
     Route: 048
     Dates: start: 20111116

REACTIONS (2)
  - HYPERSENSITIVITY [None]
  - EXPIRED DRUG ADMINISTERED [None]
